FAERS Safety Report 15117785 (Version 1)
Quarter: 2018Q3

REPORT INFORMATION
  Report Type: Spontaneous
  Country: CA (occurrence: CA)
  Receive Date: 20180706
  Receipt Date: 20180706
  Transmission Date: 20181010
  Serious: Yes (Hospitalization)
  Sender: FDA-Public Use
  Company Number: CA-PFIZER INC-2018265526

PATIENT
  Age: 25 Year
  Sex: Male
  Weight: 45.7 kg

DRUGS (4)
  1. INFLECTRA [Concomitant]
     Active Substance: INFLIXIMAB-DYYB
     Indication: CROHN^S DISEASE
     Dosage: 450 MG/Q (EVERY) 6 WEEKS, THEN EVERY 8 WEEKS
     Route: 042
     Dates: start: 20180619
  2. SOLU?MEDROL [Suspect]
     Active Substance: METHYLPREDNISOLONE SODIUM SUCCINATE
     Dosage: UNK
     Route: 042
     Dates: start: 201802
  3. AZATHIOPRINE. [Concomitant]
     Active Substance: AZATHIOPRINE
     Dosage: 75 MG, UNK
     Dates: start: 201802, end: 201806
  4. PREDNISONE. [Concomitant]
     Active Substance: PREDNISONE
     Dosage: UNK
     Dates: start: 201802

REACTIONS (4)
  - Small intestinal obstruction [Unknown]
  - Gastrointestinal inflammation [Unknown]
  - Small intestinal stenosis [Unknown]
  - Therapy non-responder [Unknown]
